FAERS Safety Report 8805809 (Version 1)
Quarter: 2012Q4

REPORT INFORMATION
  Report Type: Spontaneous
  Country: ES (occurrence: None)
  Receive Date: 20120917
  Receipt Date: 20120917
  Transmission Date: 20130627
  Serious: Yes (Other)
  Sender: FDA-Public Use
  Company Number: 2012P1056376

PATIENT
  Age: 31 Year
  Sex: Female

DRUGS (14)
  1. METRONIDAZOLE [Suspect]
     Indication: ECZEMATOUS RASH
     Dates: start: 2011, end: 201110
  2. QUETIAPINE [Suspect]
     Dates: start: 201108, end: 20110905
  3. QUETIAPINE [Suspect]
     Dates: start: 20110905, end: 20110921
  4. QUETIAPINE [Suspect]
     Dates: start: 20110921, end: 20111005
  5. QUETIAPINE [Suspect]
     Dates: start: 20111005, end: 201110
  6. ARIPIPRAZOLE [Concomitant]
  7. OLANZAPINE [Concomitant]
  8. SERTRALINE [Concomitant]
  9. CLONAZEPAM [Concomitant]
  10. DIAZEPAM [Concomitant]
  11. OMEPRAZOLE [Concomitant]
  12. IBUPROFEN [Concomitant]
  13. PARACETAMOL [Concomitant]
  14. AMOXICILLIN/CLAVULANIC ACID [Concomitant]

REACTIONS (6)
  - Urinary tract infection [None]
  - Parkinsonism [None]
  - Sedation [None]
  - Anaemia [None]
  - Salivary hypersecretion [None]
  - Drug interaction [None]
